FAERS Safety Report 8421481-2 (Version None)
Quarter: 2012Q2

REPORT INFORMATION
  Report Type: 
  Country: None (occurrence: None)
  Receive Date: 20120608
  Receipt Date: 20120529
  Transmission Date: 20120825
  Serious: Yes (Other)
  Sender: FDA-Public Use
  Company Number: FR-JNJFOC-20120600546

PATIENT
  Age: 44 Year
  Sex: Female

DRUGS (2)
  1. REMICADE [Suspect]
     Indication: CROHN'S DISEASE
     Route: 042
     Dates: start: 20110601
  2. REMICADE [Suspect]
     Route: 042
     Dates: start: 20100701

REACTIONS (2)
  - PSORIASIS [None]
  - RHEUMATOID ARTHRITIS [None]
